FAERS Safety Report 12719932 (Version 1)
Quarter: 2016Q3

REPORT INFORMATION
  Report Type: Spontaneous
  Country: US (occurrence: US)
  Receive Date: 20160907
  Receipt Date: 20160907
  Transmission Date: 20161109
  Serious: Yes (Other)
  Sender: FDA-Public Use
  Company Number: US-JNJFOC-20150900572

PATIENT
  Sex: Male

DRUGS (8)
  1. LEVAQUIN [Suspect]
     Active Substance: LEVOFLOXACIN
     Indication: PROSTATE INFECTION
     Route: 048
     Dates: start: 20100115, end: 20100205
  2. LEVAQUIN [Suspect]
     Active Substance: LEVOFLOXACIN
     Indication: PROSTATE INFECTION
     Route: 048
     Dates: start: 20100401, end: 20100415
  3. CIPRO [Suspect]
     Active Substance: CIPROFLOXACIN HYDROCHLORIDE
     Indication: PROSTATE INFECTION
     Route: 065
     Dates: start: 2010
  4. LEVAQUIN [Suspect]
     Active Substance: LEVOFLOXACIN
     Indication: PROSTATE INFECTION
     Route: 048
     Dates: start: 20090723, end: 20090813
  5. LEVAQUIN [Suspect]
     Active Substance: LEVOFLOXACIN
     Indication: PROSTATE INFECTION
     Route: 048
     Dates: start: 201011
  6. LEVAQUIN [Suspect]
     Active Substance: LEVOFLOXACIN
     Indication: PROSTATE INFECTION
     Route: 048
     Dates: start: 20100319, end: 20100402
  7. LEVAQUIN [Suspect]
     Active Substance: LEVOFLOXACIN
     Indication: PROSTATE INFECTION
     Route: 048
     Dates: start: 20090703, end: 20090717
  8. CIPRO [Suspect]
     Active Substance: CIPROFLOXACIN HYDROCHLORIDE
     Indication: PROSTATE INFECTION
     Route: 065
     Dates: start: 20100414, end: 20100504

REACTIONS (1)
  - Neuropathy peripheral [Not Recovered/Not Resolved]

NARRATIVE: CASE EVENT DATE: 2010
